FAERS Safety Report 16546477 (Version 2)
Quarter: 2021Q3

REPORT INFORMATION
  Report Type: Spontaneous
  Country: US (occurrence: US)
  Receive Date: 20190709
  Receipt Date: 20210709
  Transmission Date: 20211014
  Serious: No
  Sender: FDA-Public Use
  Company Number: US-ASTELLAS-2018US042571

PATIENT
  Age: 75 Year
  Sex: Female

DRUGS (1)
  1. MYRBETRIQ [Suspect]
     Active Substance: MIRABEGRON
     Indication: HYPERTONIC BLADDER
     Route: 065
     Dates: start: 201809

REACTIONS (6)
  - Dry eye [Unknown]
  - Drug ineffective [Unknown]
  - Feeling abnormal [Unknown]
  - Treatment noncompliance [Unknown]
  - Dehydration [Unknown]
  - Dry mouth [Unknown]
